FAERS Safety Report 24918783 (Version 1)
Quarter: 2025Q1

REPORT INFORMATION
  Report Type: Spontaneous
  Country: US (occurrence: US)
  Receive Date: 20250204
  Receipt Date: 20250204
  Transmission Date: 20250409
  Serious: Yes (Other)
  Sender: NOVO NORDISK
  Company Number: US-NOVOPROD-1318731

PATIENT
  Age: 73 Year
  Sex: Female

DRUGS (2)
  1. NOVOLOG [Suspect]
     Active Substance: INSULIN ASPART
     Indication: Product used for unknown indication
     Route: 058
  2. TRESIBA [Suspect]
     Active Substance: INSULIN DEGLUDEC
     Indication: Product used for unknown indication
     Dosage: 14 IU, QD(AT NIGHT)
     Route: 058

REACTIONS (1)
  - Atrial fibrillation [Not Recovered/Not Resolved]

NARRATIVE: CASE EVENT DATE: 20200101
